FAERS Safety Report 5427778-2 (Version None)
Quarter: 2007Q3

REPORT INFORMATION
  Report Type: 
  Country: None (occurrence: None)
  Receive Date: 20070828
  Receipt Date: 20070823
  Transmission Date: 20080115
  Serious: Yes (Death, Hospitalization)
  Sender: FDA-Public Use
  Company Number: MX-ELI_LILLY_AND_COMPANY-MX200708005222

PATIENT
  Age: 30 Year
  Sex: Male

DRUGS (4)
  1. SYMBYAX [Suspect]
     Indication: BIPOLAR DISORDER
     Dosage: UNK UNK, DAILY (1/D)
     Route: 048
     Dates: start: 20070101, end: 20070101
  2. SYMBYAX [Suspect]
     Dosage: UNK UNK, DAILY (1/D)
     Route: 048
     Dates: start: 20070101, end: 20070101
  3. SYMBYAX [Suspect]
     Dosage: UNK UNK, DAILY (1/D)
     Route: 048
     Dates: start: 20070101, end: 20070101
  4. SYMBYAX [Suspect]
     Dosage: UNK UNK, DAILY (1/D)
     Route: 048
     Dates: start: 20070101, end: 20070101

REACTIONS (3)
  - BLOOD GLUCOSE INCREASED [None]
  - DEATH [None]
  - HYPERTENSION [None]
